FAERS Safety Report 15069595 (Version 1)
Quarter: 2018Q2

REPORT INFORMATION
  Report Type: Spontaneous
  Country: US (occurrence: US)
  Receive Date: 20180626
  Receipt Date: 20180626
  Transmission Date: 20180711
  Serious: No
  Sender: FDA-Public Use
  Company Number: US-AMGEN-USASP2011065389

PATIENT
  Age: 60 Year
  Sex: Female

DRUGS (7)
  1. ZOFRAN [Concomitant]
     Active Substance: ONDANSETRON HYDROCHLORIDE
  2. TAXOTERE [Concomitant]
     Active Substance: DOCETAXEL
  3. NEULASTA [Suspect]
     Active Substance: PEGFILGRASTIM
     Indication: OVARIAN CANCER
     Dosage: UNK
     Dates: start: 2009, end: 2010
  4. TAXOL [Concomitant]
     Active Substance: PACLITAXEL
  5. ABRAXANE [Concomitant]
     Active Substance: PACLITAXEL
  6. CISPLATIN. [Concomitant]
     Active Substance: CISPLATIN
  7. CARBOPLATIN. [Concomitant]
     Active Substance: CARBOPLATIN

REACTIONS (4)
  - Bone pain [Not Recovered/Not Resolved]
  - Memory impairment [Unknown]
  - Headache [Unknown]
  - Neuropathy peripheral [Unknown]

NARRATIVE: CASE EVENT DATE: 2009
